FAERS Safety Report 10252740 (Version 1)
Quarter: 2014Q2

REPORT INFORMATION
  Report Type: Report from Study
  Country: US (occurrence: US)
  Receive Date: 20140623
  Receipt Date: 20140623
  Transmission Date: 20141212
  Serious: Yes (Hospitalization, Other)
  Sender: FDA-Public Use
  Company Number: US-JNJFOC-20140610922

PATIENT
  Age: 39 Year
  Sex: Male
  Weight: 71.67 kg

DRUGS (8)
  1. REMICADE [Suspect]
     Indication: PRODUCT USED FOR UNKNOWN INDICATION
     Route: 042
  2. CIPRO [Concomitant]
     Route: 065
  3. FLAGYL [Concomitant]
     Route: 065
  4. MULTIVITAMINS [Concomitant]
     Route: 065
  5. PROTONIX [Concomitant]
     Route: 065
  6. PREDNISONE [Concomitant]
     Route: 065
  7. SIMVASTATIN [Concomitant]
     Route: 065
  8. PROBIOTICS [Concomitant]
     Route: 065

REACTIONS (6)
  - Pallor [Unknown]
  - Weight decreased [Unknown]
  - Dehydration [Unknown]
  - Gait disturbance [Unknown]
  - Abdominal pain [Not Recovered/Not Resolved]
  - Heart rate increased [Unknown]
